FAERS Safety Report 20833432 (Version 2)
Quarter: 2022Q2

REPORT INFORMATION
  Report Type: Spontaneous
  Country: US (occurrence: None)
  Receive Date: 20220516
  Receipt Date: 20220628
  Transmission Date: 20220721
  Serious: Yes (Other)
  Sender: FDA-Public Use
  Company Number: 2022A180047

PATIENT
  Sex: Female
  Weight: 90.7 kg

DRUGS (2)
  1. FASENRA [Suspect]
     Active Substance: BENRALIZUMAB
     Indication: Asthma
     Route: 058
     Dates: start: 202203
  2. FASENRA [Suspect]
     Active Substance: BENRALIZUMAB
     Indication: Asthma
     Route: 058
     Dates: start: 20220411

REACTIONS (6)
  - Joint space narrowing [Unknown]
  - Cardiac failure congestive [Unknown]
  - Joint hyperextension [Unknown]
  - Overweight [Unknown]
  - Swelling [Unknown]
  - Product use issue [Unknown]
